FAERS Safety Report 4970407-2 (Version None)
Quarter: 2006Q2

REPORT INFORMATION
  Report Type: 
  Country: None (occurrence: None)
  Receive Date: 20060412
  Receipt Date: 20060403
  Transmission Date: 20061013
  Serious: Yes (Other)
  Sender: FDA-Public Use
  Company Number: GB-GLAXOSMITHKLINE-B0419685A

PATIENT
  Age: 13 Year
  Sex: Male

DRUGS (1)
  1. BECLOMETHASONE DIPROPIONATE [Suspect]
     Indication: ASTHMA
     Dosage: 200MCG PER DAY
     Route: 055

REACTIONS (4)
  - ADRENAL SUPPRESSION [None]
  - BLOOD CORTICOTROPHIN DECREASED [None]
  - GROWTH RETARDATION [None]
  - HYPOTHALAMO-PITUITARY DISORDERS [None]
